FAERS Safety Report 5871846-8 (Version None)
Quarter: 2008Q3

REPORT INFORMATION
  Report Type: 
  Country: None (occurrence: None)
  Receive Date: 20080904
  Receipt Date: 20080904
  Transmission Date: 20090109
  Serious: Yes (Hospitalization)
  Sender: FDA-Public Use
  Company Number: None

PATIENT
  Sex: Female
  Weight: 56.2 kg

DRUGS (3)
  1. GEMCITABINE [Suspect]
     Indication: PANCREATIC CARCINOMA
     Dosage: 800 MG/M2 D1, D8, IV
     Route: 042
     Dates: start: 20080821, end: 20080821
  2. CAPECITABINE [Suspect]
     Dosage: 375 MG/M2 D1-D14 PO
     Route: 048
     Dates: start: 20080821, end: 20080826
  3. LOVENOX [Concomitant]

REACTIONS (4)
  - ANOREXIA [None]
  - CEREBRAL HAEMORRHAGE [None]
  - HYPOKALAEMIA [None]
  - PULMONARY EMBOLISM [None]
